FAERS Safety Report 12510587 (Version 4)
Quarter: 2017Q3

REPORT INFORMATION
  Report Type: Report from Study
  Country: PE (occurrence: PE)
  Receive Date: 20160629
  Receipt Date: 20170717
  Transmission Date: 20171127
  Serious: Yes (Hospitalization)
  Sender: FDA-Public Use
  Company Number: PE-PFIZER INC-2016194740

PATIENT
  Age: 44 Year
  Sex: Female
  Weight: 66 kg

DRUGS (27)
  1. TRAMADOL. [Concomitant]
     Active Substance: TRAMADOL
     Indication: RHEUMATOID ARTHRITIS
     Dosage: 100 MG, 3X/DAY
     Route: 042
     Dates: start: 20160405, end: 20160409
  2. ACETAMINOPHEN. [Concomitant]
     Active Substance: ACETAMINOPHEN
     Indication: RHEUMATOID ARTHRITIS
     Dosage: 1 DF, AS NEEDED
     Route: 048
     Dates: start: 20160405, end: 20160409
  3. INSULIN REGULAR /01223201/ [Concomitant]
     Active Substance: INSULIN BEEF
     Indication: TYPE 2 DIABETES MELLITUS
     Dosage: 3 IU, AS NEEDED
     Route: 058
     Dates: start: 20160405, end: 20160405
  4. INFLIXIMAB [Suspect]
     Active Substance: INFLIXIMAB
     Indication: RHEUMATOID ARTHRITIS
     Dosage: 219 MG
     Route: 042
     Dates: start: 20151021, end: 20151021
  5. METHOTREXATE SODIUM. [Suspect]
     Active Substance: METHOTREXATE SODIUM
     Indication: RHEUMATOID ARTHRITIS
     Dosage: 15 MG, WEEKLY
     Route: 048
     Dates: start: 20150409, end: 20160402
  6. INFLIXIMAB [Suspect]
     Active Substance: INFLIXIMAB
     Dosage: 219 MG
     Route: 042
     Dates: start: 20151104, end: 20151104
  7. INFLIXIMAB [Suspect]
     Active Substance: INFLIXIMAB
     Dosage: 365 MG
     Route: 042
     Dates: start: 20160125, end: 20160125
  8. TRAMADOL/PARACETAMOL [Concomitant]
     Active Substance: ACETAMINOPHEN\TRAMADOL
     Indication: RHEUMATOID ARTHRITIS
     Dosage: 325 / 37.5 MG, 2X/DAY
     Route: 048
     Dates: start: 20140130, end: 20160403
  9. OMEPRAZOL [Concomitant]
     Active Substance: OMEPRAZOLE
     Dosage: 40 MG, 1X/DAY
     Route: 042
     Dates: start: 20160405, end: 20160405
  10. INSULINA NPH [Concomitant]
     Active Substance: INSULIN HUMAN
     Indication: TYPE 2 DIABETES MELLITUS
     Dosage: 12/6 IU, AS NEEDED
     Route: 058
     Dates: start: 20160406, end: 20160409
  11. OMEPRAZOL [Concomitant]
     Active Substance: OMEPRAZOLE
     Dosage: 20 MG, 2X/DAY
     Route: 048
     Dates: start: 20160531
  12. ACETAMINOPHEN/TRAMADOL HYDROCHLORIDE [Concomitant]
     Active Substance: ACETAMINOPHEN\TRAMADOL HYDROCHLORIDE
     Indication: RHEUMATOID ARTHRITIS
     Dosage: 325/37.5 MG, 2X/DAY
     Route: 048
     Dates: start: 20160407, end: 20160409
  13. FOLIC ACID. [Concomitant]
     Active Substance: FOLIC ACID
     Indication: PROPHYLAXIS
     Dosage: 0.5 MG, 2X/DAY
     Route: 048
     Dates: start: 20130502, end: 20160403
  14. DICLOFENACO /00372301/ [Concomitant]
     Active Substance: DICLOFENAC
     Dosage: 50 MG, 2X/DAY
     Route: 048
     Dates: start: 20160407, end: 20160408
  15. DICLOFENACO /00372301/ [Concomitant]
     Active Substance: DICLOFENAC
     Dosage: 50 MG, 2X/DAY
     Route: 048
     Dates: start: 20160413, end: 20160531
  16. OMEPRAZOL [Concomitant]
     Active Substance: OMEPRAZOLE
     Dosage: 20 MG, 1X/DAY
     Route: 048
     Dates: start: 20160413, end: 20160530
  17. INFLIXIMAB [Suspect]
     Active Substance: INFLIXIMAB
     Dosage: 219 MG
     Route: 042
     Dates: start: 20151130, end: 20151130
  18. DEFLAZACORT [Suspect]
     Active Substance: DEFLAZACORT
     Dosage: 6 MG, 2X/DAY
     Route: 048
     Dates: start: 20160407
  19. INFLIXIMAB [Suspect]
     Active Substance: INFLIXIMAB
     Dosage: 365 MG
     Route: 042
     Dates: start: 20160317, end: 20160317
  20. METHOTREXATE SODIUM. [Suspect]
     Active Substance: METHOTREXATE SODIUM
     Dosage: 15 MG, WEEKLY
     Route: 048
     Dates: start: 20160507, end: 20160514
  21. DICLOFENACO /00372301/ [Concomitant]
     Active Substance: DICLOFENAC
     Indication: RHEUMATOID ARTHRITIS
     Dosage: 50 MG, 2X/DAY
     Route: 048
     Dates: start: 20150512, end: 20160403
  22. DICLOFENACO /00372301/ [Concomitant]
     Active Substance: DICLOFENAC
     Dosage: 75 MG, 1X/DAY
     Route: 042
     Dates: start: 20160408, end: 20160408
  23. INSULIN REGULAR /01223201/ [Concomitant]
     Active Substance: INSULIN BEEF
     Dosage: 5 IU, AS NEEDED
     Route: 058
     Dates: start: 20160406, end: 20160406
  24. HYDROCORTISONE. [Concomitant]
     Active Substance: HYDROCORTISONE
     Indication: RHEUMATOID ARTHRITIS
     Dosage: 100 MG, 2X/DAY
     Route: 042
     Dates: start: 20160405, end: 20160406
  25. DEFLAZACORT [Suspect]
     Active Substance: DEFLAZACORT
     Indication: RHEUMATOID ARTHRITIS
     Dosage: 6 MG, 2X/DAY
     Route: 048
     Dates: start: 20130509, end: 20160403
  26. OMEPRAZOL [Concomitant]
     Active Substance: OMEPRAZOLE
     Indication: GASTRITIS PROPHYLAXIS
     Dosage: 20 MG, DAILY
     Route: 048
     Dates: start: 20150115, end: 20160403
  27. ACETAMINOPHEN/TRAMADOL HYDROCHLORIDE [Concomitant]
     Active Substance: ACETAMINOPHEN\TRAMADOL HYDROCHLORIDE
     Dosage: 325/37.5 MG, 2X/DAY
     Route: 048
     Dates: start: 20160412

REACTIONS (1)
  - Pyelonephritis acute [Recovered/Resolved]

NARRATIVE: CASE EVENT DATE: 20160331
